FAERS Safety Report 5648216-0 (Version None)
Quarter: 2008Q1

REPORT INFORMATION
  Report Type: 
  Country: None (occurrence: None)
  Receive Date: 20080229
  Receipt Date: 20080219
  Transmission Date: 20080703
  Serious: Yes (Hospitalization)
  Sender: FDA-Public Use
  Company Number: GXKR2008CA01771

PATIENT
  Age: 45 Year
  Sex: Male

DRUGS (2)
  1. DESIPRAMINE (NGX) (DESIPRAMIDE) UNKNOWN [Suspect]
     Indication: PHANTOM PAIN
     Dosage: 75 MG, QD; 50 MG, QD
  2. VENLAFAXIINE HCL [Suspect]
     Indication: DEPRESSION
     Dosage: 37.5 MG, QD, 75 MG, QD

REACTIONS (14)
  - ABNORMAL BEHAVIOUR [None]
  - AGITATION [None]
  - ANGER [None]
  - ANXIETY [None]
  - DEPRESSION [None]
  - DRUG INTERACTION [None]
  - FLIGHT OF IDEAS [None]
  - HOMICIDAL IDEATION [None]
  - IRRITABILITY [None]
  - MANIA [None]
  - NIGHTMARE [None]
  - PANIC ATTACK [None]
  - POOR QUALITY SLEEP [None]
  - RAPID EYE MOVEMENTS SLEEP ABNORMAL [None]
